FAERS Safety Report 26021303 (Version 1)
Quarter: 2025Q4

REPORT INFORMATION
  Report Type: Spontaneous
  Country: BR (occurrence: BR)
  Receive Date: 20251110
  Receipt Date: 20251110
  Transmission Date: 20260118
  Serious: Yes (Other)
  Sender: BOEHRINGER INGELHEIM
  Company Number: BR-BoehringerIngelheim-2025-BI-105990

PATIENT
  Age: 14 Year
  Sex: Male
  Weight: 57 kg

DRUGS (7)
  1. JARDIANCE [Suspect]
     Active Substance: EMPAGLIFLOZIN
     Indication: Product used for unknown indication
     Dosage: HE INGESTED 20 TABLETS.
     Dates: start: 20251104, end: 20251104
  2. ENALAPRIL [Suspect]
     Active Substance: ENALAPRIL
     Indication: Product used for unknown indication
     Dosage: HE INGESTED 50 TABLETS.
     Dates: start: 20251104, end: 20251104
  3. SERTRALINE [Suspect]
     Active Substance: SERTRALINE HYDROCHLORIDE
     Indication: Product used for unknown indication
     Dosage: HE INGESTED 90 TABLETS.
     Dates: start: 20251104, end: 20251104
  4. METOPROLOL [Suspect]
     Active Substance: METOPROLOL
     Indication: Product used for unknown indication
     Dosage: HE INGESTED 30 TABLETS.
     Dates: start: 20251104, end: 20251104
  5. EZETIMIBE [Suspect]
     Active Substance: EZETIMIBE
     Indication: Product used for unknown indication
     Dosage: HE INGESTED 60 TABLETS.
     Dates: start: 20251104, end: 20251104
  6. ASPIRIN [Suspect]
     Active Substance: ASPIRIN
     Indication: Product used for unknown indication
     Dosage: HE INGESTED 20 TABLETS.
     Dates: start: 20251104, end: 20251104
  7. ROSUVASTATIN [Suspect]
     Active Substance: ROSUVASTATIN
     Indication: Product used for unknown indication
     Dosage: HE INGESTED 30 TABLETS.
     Dates: start: 20251104, end: 20251104

REACTIONS (3)
  - Suicide attempt [Unknown]
  - Vomiting [Recovered/Resolved]
  - Diarrhoea [Recovered/Resolved]

NARRATIVE: CASE EVENT DATE: 20251104
